FAERS Safety Report 7133564-8 (Version None)
Quarter: 2010Q4

REPORT INFORMATION
  Report Type: 
  Country: None (occurrence: None)
  Receive Date: 20101202
  Receipt Date: 20101124
  Transmission Date: 20110411
  Serious: Yes (Other)
  Sender: FDA-Public Use
  Company Number: CA-ALLERGAN-1015282US

PATIENT
  Age: 61 Year
  Sex: Female

DRUGS (3)
  1. RESTASIS [Suspect]
     Indication: BLEPHARITIS
     Dosage: 1 GTT, BID
     Route: 047
     Dates: start: 20101103, end: 20101119
  2. RESTASIS [Suspect]
     Indication: LACRIMAL DISORDER
  3. ERYTHROMYCIN [Concomitant]
     Indication: PRODUCT USED FOR UNKNOWN INDICATION
     Dosage: UNK
     Route: 047
     Dates: start: 20090101

REACTIONS (3)
  - PRURITUS [None]
  - VISION BLURRED [None]
  - VISUAL ACUITY REDUCED [None]
